FAERS Safety Report 15022132 (Version 1)
Quarter: 2018Q2

REPORT INFORMATION
  Report Type: Spontaneous
  Country: US (occurrence: US)
  Receive Date: 20180618
  Receipt Date: 20180618
  Transmission Date: 20180711
  Serious: Yes (Other)
  Sender: FDA-Public Use
  Company Number: US-SA-2018SA155416

PATIENT
  Age: 57 Year
  Sex: Female

DRUGS (10)
  1. PROTONIX [OMEPRAZOLE] [Concomitant]
  2. TAXOTERE [Suspect]
     Active Substance: DOCETAXEL
     Dosage: UNK
     Route: 042
     Dates: start: 20070920, end: 20070920
  3. DOXORUBICIN [Concomitant]
     Active Substance: DOXORUBICIN
  4. QVAR [Concomitant]
     Active Substance: BECLOMETHASONE DIPROPIONATE
  5. XELODA [Concomitant]
     Active Substance: CAPECITABINE
     Dosage: 1650 MG, BID
     Route: 048
  6. CELEXA [CELECOXIB] [Concomitant]
  7. CYCLOPHOSPHAMIDE. [Concomitant]
     Active Substance: CYCLOPHOSPHAMIDE
  8. TAXOTERE [Suspect]
     Active Substance: DOCETAXEL
     Indication: BREAST CANCER
     Dosage: UNK UNK, Q3W
     Route: 042
     Dates: start: 20070720, end: 20070720
  9. ATIVAN [Concomitant]
     Active Substance: LORAZEPAM
  10. LOVASTATIN. [Concomitant]
     Active Substance: LOVASTATIN

REACTIONS (1)
  - Alopecia [Not Recovered/Not Resolved]

NARRATIVE: CASE EVENT DATE: 2007
